FAERS Safety Report 8976172 (Version 1)
Quarter: 2012Q4

REPORT INFORMATION
  Report Type: 
  Country: US (occurrence: US)
  Receive Date: 20121219
  Receipt Date: 20121219
  Transmission Date: 20130627
  Serious: No
  Sender: FDA-Public Use
  Company Number: US-AMGEN-USASP2012066217

PATIENT
  Age: 78 Year
  Sex: Female

DRUGS (3)
  1. PROLIA [Suspect]
     Indication: PRODUCT USED FOR UNKNOWN INDICATION
     Dosage: UNK
     Dates: start: 201204
  2. LEVOTHYROXINE [Concomitant]
     Dosage: 100 mug, qd
  3. NEXIUM [Concomitant]
     Dosage: UNK

REACTIONS (3)
  - Increased appetite [Unknown]
  - Fatigue [Unknown]
  - Weight increased [Unknown]
